FAERS Safety Report 14249346 (Version 2)
Quarter: 2018Q1

REPORT INFORMATION
  Report Type: Spontaneous
  Country: GR (occurrence: GR)
  Receive Date: 20171204
  Receipt Date: 20180126
  Transmission Date: 20180508
  Serious: Yes (Other)
  Sender: FDA-Public Use
  Company Number: GR-AMGEN-GRCSP2017180377

PATIENT
  Age: 61 Year
  Sex: Female

DRUGS (1)
  1. ENBREL [Suspect]
     Active Substance: ETANERCEPT
     Indication: ARTHRITIS
     Dosage: 50 MG, UNK
     Route: 065

REACTIONS (4)
  - Cough [Unknown]
  - Respiratory tract infection [Unknown]
  - Injection site pruritus [Recovering/Resolving]
  - Condition aggravated [Unknown]
